FAERS Safety Report 6357490-7 (Version None)
Quarter: 2009Q3

REPORT INFORMATION
  Report Type: 
  Country: None (occurrence: None)
  Receive Date: 20090916
  Receipt Date: 20070813
  Transmission Date: 20100115
  Serious: Yes (Other)
  Sender: FDA-Public Use
  Company Number: US-ASTRAZENECA-2006UW23993

PATIENT
  Age: 21976 Day
  Sex: Female
  Weight: 63.5 kg

DRUGS (6)
  1. SEROQUEL [Suspect]
     Dosage: 25-100MG
     Route: 048
     Dates: start: 20021216
  2. SEROQUEL [Suspect]
     Route: 048
     Dates: end: 20030324
  3. ZYPREXA [Concomitant]
     Route: 048
     Dates: start: 20050808
  4. DEPAKOTE [Concomitant]
     Dosage: 250-500MG
     Route: 048
     Dates: start: 20021216
  5. ALTACE OR [Concomitant]
     Route: 048
     Dates: start: 20021224
  6. PREDNISONE [Concomitant]
     Route: 048
     Dates: start: 20021224

REACTIONS (4)
  - DIABETES MELLITUS [None]
  - DIABETIC COMA [None]
  - DIABETIC GASTROPARESIS [None]
  - DIABETIC KETOACIDOSIS [None]
